FAERS Safety Report 10223095 (Version 1)
Quarter: 2014Q2

REPORT INFORMATION
  Report Type: Spontaneous
  Country: US (occurrence: None)
  Receive Date: 20140606
  Receipt Date: 20140606
  Transmission Date: 20141212
  Serious: Yes (Other)
  Sender: FDA-Public Use
  Company Number: None

PATIENT
  Age: 75 Year
  Sex: Male

DRUGS (3)
  1. XTANDI [Suspect]
     Indication: PROSTATE CANCER
     Route: 048
     Dates: start: 20140407, end: 20140603
  2. DEXAMETHASONE [Concomitant]
  3. MULTIVIT [Concomitant]

REACTIONS (2)
  - Drug ineffective [None]
  - Therapy cessation [None]
